FAERS Safety Report 15798548 (Version 2)
Quarter: 2019Q1

REPORT INFORMATION
  Report Type: Report from Study
  Country: US (occurrence: US)
  Receive Date: 20190108
  Receipt Date: 20190109
  Transmission Date: 20190417
  Serious: Yes (Hospitalization, Other)
  Sender: FDA-Public Use
  Company Number: US-BAYER-2018-179086

PATIENT
  Age: 63 Year
  Sex: Male

DRUGS (4)
  1. LUPRON [Concomitant]
     Active Substance: LEUPROLIDE ACETATE
  2. XOFIGO [Suspect]
     Active Substance: RADIUM RA-223 DICHLORIDE
     Indication: HORMONE-REFRACTORY PROSTATE CANCER
     Dosage: 130.70 ?CI, Q1MON
     Route: 042
     Dates: start: 20180712, end: 20180712
  3. ZOMETA [Concomitant]
     Active Substance: ZOLEDRONIC ACID
  4. XOFIGO [Suspect]
     Active Substance: RADIUM RA-223 DICHLORIDE
     Indication: METASTASES TO BONE

REACTIONS (16)
  - Hormone-refractory prostate cancer [Unknown]
  - Prostatic specific antigen increased [None]
  - Varicose vein [None]
  - Hypercholesterolaemia [None]
  - Thrombocytopenia [None]
  - Pancytopenia [Recovered/Resolved]
  - Large intestine polyp [None]
  - Arthritis [None]
  - Hypertriglyceridaemia [None]
  - Hypertension [None]
  - Fatigue [None]
  - Febrile neutropenia [Recovered/Resolved]
  - Sepsis [None]
  - Anaemia [Unknown]
  - Soft tissue disorder [None]
  - Pyrexia [None]
